FAERS Safety Report 8131234-0 (Version None)
Quarter: 2012Q1

REPORT INFORMATION
  Report Type: 
  Country: None (occurrence: None)
  Receive Date: 20120210
  Receipt Date: 20120210
  Transmission Date: 20120608
  Serious: Yes (Hospitalization, Other)
  Sender: FDA-Public Use
  Company Number: None

PATIENT
  Age: 28 Year
  Sex: Female

DRUGS (1)
  1. ADCETRIS [Suspect]
     Indication: NON-HODGKIN'S LYMPHOMA REFRACTORY
     Dosage: 111MG Q3WEEKS IV
     Route: 042
     Dates: start: 20110801, end: 20120120

REACTIONS (9)
  - RASH PRURITIC [None]
  - OROPHARYNGEAL PAIN [None]
  - RASH MACULAR [None]
  - CONJUNCTIVITIS [None]
  - PULMONARY CONGESTION [None]
  - PYREXIA [None]
  - BLISTER [None]
  - PAIN [None]
  - DYSPHAGIA [None]
